FAERS Safety Report 16831210 (Version 1)
Quarter: 2019Q3

REPORT INFORMATION
  Report Type: Spontaneous
  Country: CA (occurrence: CA)
  Receive Date: 20190920
  Receipt Date: 20190920
  Transmission Date: 20191005
  Serious: Yes (Hospitalization, Other)
  Sender: FDA-Public Use
  Company Number: CA-TEVA-2019-CA-1111504

PATIENT
  Age: 64 Year
  Sex: Male

DRUGS (1)
  1. TADALAFIL. [Suspect]
     Active Substance: TADALAFIL
     Indication: PULMONARY ARTERIAL HYPERTENSION
     Dosage: 40 GRAM DAILY;
     Route: 065

REACTIONS (6)
  - Musculoskeletal discomfort [Unknown]
  - Dyspnoea [Unknown]
  - Limb injury [Unknown]
  - Oedema peripheral [Unknown]
  - Weight decreased [Unknown]
  - Musculoskeletal pain [Unknown]
